FAERS Safety Report 15494632 (Version 4)
Quarter: 2020Q2

REPORT INFORMATION
  Report Type: Report from Study
  Country: CO (occurrence: CO)
  Receive Date: 20181012
  Receipt Date: 20200609
  Transmission Date: 20200713
  Serious: Yes (Other)
  Sender: FDA-Public Use
  Company Number: PHHY2018CO120848

PATIENT
  Sex: Female
  Weight: 70 kg

DRUGS (5)
  1. AFINITOR [Suspect]
     Active Substance: EVEROLIMUS
     Indication: NEUROENDOCRINE TUMOUR OF THE LUNG
     Dosage: 10 MG, QD
     Route: 048
     Dates: start: 20180904
  2. AFINITOR [Suspect]
     Active Substance: EVEROLIMUS
     Indication: GASTROENTEROPANCREATIC NEUROENDOCRINE TUMOUR DISEASE
  3. LOSARTAN POTASSIUM. [Suspect]
     Active Substance: LOSARTAN POTASSIUM
     Indication: HYPERTENSION
     Dosage: 50 MG, Q12H
     Route: 048
  4. OCTREOTIDE. [Suspect]
     Active Substance: OCTREOTIDE
     Indication: LUNG NEOPLASM
     Dosage: UNK, QMO
     Route: 030
  5. ACETAMINOPHEN. [Concomitant]
     Active Substance: ACETAMINOPHEN
     Indication: SPINAL PAIN
     Dosage: 500 MG, Q12H
     Route: 065

REACTIONS (6)
  - Tumour pain [Unknown]
  - Gastritis [Unknown]
  - Malaise [Unknown]
  - Dizziness [Unknown]
  - Neoplasm progression [Unknown]
  - Diabetes mellitus [Unknown]
